FAERS Safety Report 18662233 (Version 1)
Quarter: 2020Q4

REPORT INFORMATION
  Report Type: Spontaneous
  Country: CA (occurrence: CA)
  Receive Date: 20201224
  Receipt Date: 20201224
  Transmission Date: 20210114
  Serious: Yes (Other)
  Sender: FDA-Public Use
  Company Number: CA-ALLERGAN-2049574US

PATIENT
  Age: 37 Year
  Sex: Female
  Weight: 56 kg

DRUGS (4)
  1. ASENAPINE MALEATE - BP [Suspect]
     Active Substance: ASENAPINE MALEATE
     Indication: PRODUCT USED FOR UNKNOWN INDICATION
     Dosage: 5 MILLIGRAM; WITH TWO TEASPOONS OF MUD HONEY IN CASE OF ^LATE YACH^, EVERY NIGHT
     Route: 060
     Dates: start: 2019
  2. ASENAPINE MALEATE - BP [Suspect]
     Active Substance: ASENAPINE MALEATE
     Dosage: 10 MILIGRAM ; WITH TWO TEASPOONS OF MUD HONEY IN CASE OF ^LATE YACH^, EVERY NIGHT
     Route: 060
     Dates: start: 2019
  3. ASENAPINE MALEATE - BP [Suspect]
     Active Substance: ASENAPINE MALEATE
     Dosage: 10 MILLIGRAM  2 PILLS TWICE A MONTH
     Route: 060
  4. ASENAPINE MALEATE - BP [Suspect]
     Active Substance: ASENAPINE MALEATE
     Dosage: 5 MILLIGRAM  2 PILLS TWICE A MONTH
     Route: 060

REACTIONS (6)
  - Fatigue [Unknown]
  - Dizziness [Unknown]
  - Product taste abnormal [Unknown]
  - Shock [Unknown]
  - Unevaluable event [Unknown]
  - Dizziness postural [Unknown]

NARRATIVE: CASE EVENT DATE: 20120901
